FAERS Safety Report 13321402 (Version 7)
Quarter: 2019Q2

REPORT INFORMATION
  Report Type: Spontaneous
  Country: US (occurrence: US)
  Receive Date: 20170309
  Receipt Date: 20190531
  Transmission Date: 20190711
  Serious: Yes (Congenital Anomaly, Other)
  Sender: FDA-Public Use
  Company Number: PHEH2017US006590

PATIENT
  Sex: Female

DRUGS (1)
  1. ZOFRAN [Suspect]
     Active Substance: ONDANSETRON HYDROCHLORIDE
     Indication: FOETAL EXPOSURE DURING PREGNANCY
     Dosage: MOTHER^S DOSE: 8 MG, TID
     Route: 064

REACTIONS (28)
  - Otitis media chronic [Unknown]
  - Nasopharyngitis [Unknown]
  - Middle ear effusion [Unknown]
  - Abscess limb [Unknown]
  - Selective eating disorder [Unknown]
  - Foetal exposure during pregnancy [Unknown]
  - Tachypnoea [Unknown]
  - Cough [Unknown]
  - Injury [Unknown]
  - Abdominal pain [Unknown]
  - Oropharyngeal plaque [Unknown]
  - Cleft palate [Unknown]
  - Velopharyngeal incompetence [Unknown]
  - Fungal infection [Unknown]
  - Rash [Unknown]
  - Oroantral fistula [Unknown]
  - Temporomandibular joint syndrome [Unknown]
  - Retrognathia [Unknown]
  - Tooth loss [Unknown]
  - Somnolence [Unknown]
  - Pyrexia [Unknown]
  - Micrognathia [Unknown]
  - Cyanosis neonatal [Unknown]
  - Muscle contracture [Unknown]
  - Rhinitis allergic [Unknown]
  - Constipation [Unknown]
  - Ankyloglossia congenital [Unknown]
  - Dyspnoea [Unknown]
